FAERS Safety Report 7936127-7 (Version None)
Quarter: 2011Q4

REPORT INFORMATION
  Report Type: 
  Country: None (occurrence: None)
  Receive Date: 20111123
  Receipt Date: 20111117
  Transmission Date: 20120403
  Serious: Yes (Hospitalization)
  Sender: FDA-Public Use
  Company Number: FR-BRISTOL-MYERS SQUIBB COMPANY-15502396

PATIENT
  Age: 67 Year
  Sex: Male
  Weight: 55 kg

DRUGS (9)
  1. LANTUS [Concomitant]
     Indication: DIABETES MELLITUS
     Dosage: 1DF=25 U/D
     Route: 058
  2. IPILIMUMAB [Suspect]
     Indication: MALIGNANT MELANOMA
     Dosage: 5MG/ML
     Route: 042
     Dates: start: 20101104, end: 20101227
  3. CANDESARTAN CILEXETIL AND HYDROCHLOROTHIAZIDE [Concomitant]
     Indication: HYPERTENSION
     Route: 048
     Dates: end: 20101227
  4. ACTRAPID [Concomitant]
     Indication: DIABETES MELLITUS
     Route: 058
  5. ASPIRIN [Concomitant]
     Indication: CARDIAC DISORDER
     Dosage: KARDEGIC 160MG POWDER ORAL SOLUTION
     Route: 048
  6. SOTALOL HCL [Concomitant]
     Indication: HYPERTENSION
     Dosage: 1DF=HALF TABLET
     Route: 048
     Dates: end: 20101227
  7. PREDNISONE TAB [Concomitant]
     Indication: METASTASES TO CENTRAL NERVOUS SYSTEM
  8. ACETAMINOPHEN [Concomitant]
  9. ATORVASTATIN CALCIUM [Concomitant]
     Indication: DYSLIPIDAEMIA
     Route: 048

REACTIONS (11)
  - ELECTROCARDIOGRAM QRS COMPLEX SHORTENED [None]
  - NEPHROPATHY TOXIC [None]
  - METABOLIC ACIDOSIS [None]
  - ELECTROCARDIOGRAM T WAVE PEAKED [None]
  - COLITIS [None]
  - DIARRHOEA [None]
  - HYPERKALAEMIA [None]
  - SINUS BRADYCARDIA [None]
  - RENAL FAILURE ACUTE [None]
  - HYPOPITUITARISM [None]
  - EASTERN COOPERATIVE ONCOLOGY GROUP PERFORMANCE STATUS WORSENED [None]
